FAERS Safety Report 17741294 (Version 1)
Quarter: 2020Q3

REPORT INFORMATION
  Report Type: Report from Study
  Country: AR (occurrence: AR)
  Receive Date: 20200504
  Receipt Date: 20200504
  Transmission Date: 20201105
  Serious: Yes (Hospitalization)
  Sender: FDA-Public Use
  Company Number: NVSC2020AR100707

PATIENT
  Age: 63 Year
  Sex: Female

DRUGS (6)
  1. XOLAIR [Suspect]
     Active Substance: OMALIZUMAB
     Indication: ASTHMA
     Dosage: 8 DF
     Route: 065
     Dates: start: 20190830, end: 201912
  2. OMEPRAZOLE. [Concomitant]
     Active Substance: OMEPRAZOLE
     Indication: GASTRITIS
     Dosage: 20 MG, QD
     Route: 065
     Dates: start: 2012
  3. SALICREM [Concomitant]
     Indication: ANTIINFLAMMATORY THERAPY
     Route: 065
  4. METFORMIN [Suspect]
     Active Substance: METFORMIN HYDROCHLORIDE
     Indication: PRODUCT USED FOR UNKNOWN INDICATION
     Dosage: 500 MG, QD
     Route: 065
     Dates: start: 2014
  5. METHOTREXATE. [Concomitant]
     Active Substance: METHOTREXATE
     Indication: OSTEOARTHRITIS
     Route: 065
  6. NAPROXEN. [Concomitant]
     Active Substance: NAPROXEN
     Indication: PRODUCT USED FOR UNKNOWN INDICATION
     Dosage: 500 MG MORNING AND ONE AT NIGHT
     Route: 065

REACTIONS (6)
  - Pain [Not Recovered/Not Resolved]
  - Asthma [Unknown]
  - Agitation [Unknown]
  - Respiratory disorder [Unknown]
  - Cough [Unknown]
  - Arthritis [Unknown]

NARRATIVE: CASE EVENT DATE: 202002
